FAERS Safety Report 7911613-4 (Version None)
Quarter: 2011Q4

REPORT INFORMATION
  Report Type: 
  Country: None (occurrence: None)
  Receive Date: 20111114
  Receipt Date: 20111114
  Transmission Date: 20120403
  Serious: No
  Sender: FDA-Public Use
  Company Number: None

PATIENT

DRUGS (1)
  1. FENTANYL [Suspect]
     Indication: ANALGESIC THERAPY
     Dates: start: 20111001, end: 20111110

REACTIONS (3)
  - HYPERHIDROSIS [None]
  - VOMITING [None]
  - CONVULSION [None]
